FAERS Safety Report 5317255-1 (Version None)
Quarter: 2007Q2

REPORT INFORMATION
  Report Type: 
  Country: None (occurrence: None)
  Receive Date: 20070504
  Receipt Date: 20070427
  Transmission Date: 20071010
  Serious: Yes (Other)
  Sender: FDA-Public Use
  Company Number: US-ROXANE LABORATORIES, INC-2007-BP-05890RO

PATIENT
  Age: 63 Year
  Sex: Female

DRUGS (1)
  1. DEXAMETHASONE 0.5MG TAB [Suspect]
     Indication: METASTASES TO CENTRAL NERVOUS SYSTEM
     Route: 048

REACTIONS (2)
  - PYREXIA [None]
  - STEROID WITHDRAWAL SYNDROME [None]
